FAERS Safety Report 11500215 (Version 1)
Quarter: 2015Q3

REPORT INFORMATION
  Report Type: Report from Study
  Country: DE (occurrence: DE)
  Receive Date: 20150914
  Receipt Date: 20150914
  Transmission Date: 20151125
  Serious: Yes (Hospitalization, Other)
  Sender: FDA-Public Use
  Company Number: DE-ABBVIE-15K-062-1460638-00

PATIENT
  Age: 50 Year
  Sex: Male

DRUGS (2)
  1. HUMIRA [Suspect]
     Active Substance: ADALIMUMAB
     Indication: CROHN^S DISEASE
     Route: 058
     Dates: start: 20110601, end: 20150820
  2. HUMIRA [Suspect]
     Active Substance: ADALIMUMAB
     Route: 058
     Dates: start: 20150905

REACTIONS (4)
  - Pneumonia [Recovering/Resolving]
  - Pericarditis [Recovered/Resolved]
  - Pneumonia [Recovered/Resolved]
  - Breast pain [Recovering/Resolving]

NARRATIVE: CASE EVENT DATE: 201501
